FAERS Safety Report 8312276-9 (Version None)
Quarter: 2012Q2

REPORT INFORMATION
  Report Type: 
  Country: None (occurrence: None)
  Receive Date: 20120425
  Receipt Date: 20120424
  Transmission Date: 20120825
  Serious: Yes (Other)
  Sender: FDA-Public Use
  Company Number: DE-ROCHE-1040921

PATIENT
  Sex: Female

DRUGS (3)
  1. RADIATION THERAPY [Suspect]
     Indication: BREAST CANCER METASTATIC
  2. HERCEPTIN [Suspect]
     Indication: BREAST CANCER METASTATIC
  3. LAPATINIB [Concomitant]
     Indication: BREAST CANCER METASTATIC

REACTIONS (1)
  - LEUKOENCEPHALOPATHY [None]
